FAERS Safety Report 5804295-9 (Version None)
Quarter: 2008Q3

REPORT INFORMATION
  Report Type: 
  Country: None (occurrence: None)
  Receive Date: 20080709
  Receipt Date: 20080703
  Transmission Date: 20090109
  Serious: Yes (Other)
  Sender: FDA-Public Use
  Company Number: CH-BRISTOL-MYERS SQUIBB COMPANY-14251987

PATIENT
  Age: 27 Year
  Sex: Male

DRUGS (2)
  1. ABILIFY [Suspect]
     Indication: SCHIZOPHRENIA
     Dates: start: 20080516, end: 20080613
  2. LEPONEX [Concomitant]
     Indication: SCHIZOPHRENIA
     Route: 048
     Dates: start: 20050406

REACTIONS (2)
  - PSYCHOTIC DISORDER [None]
  - TACHYCARDIA [None]
